FAERS Safety Report 8650024 (Version 2)
Quarter: 2012Q4

REPORT INFORMATION
  Report Type: 
  Country: FR (occurrence: FR)
  Receive Date: 20120705
  Receipt Date: 20120924
  Transmission Date: 20130627
  Serious: Yes (Hospitalization)
  Sender: FDA-Public Use
  Company Number: FR-PFIZER INC-2012155338

PATIENT
  Age: 63 Year
  Sex: Male

DRUGS (2)
  1. TAHOR [Suspect]
     Dosage: 80 mg, 1x/day
     Route: 048
     Dates: start: 20120510, end: 20120525
  2. PROZAC [Suspect]
     Dosage: UNK
     Route: 048
     Dates: start: 20120511, end: 20120525

REACTIONS (7)
  - Cholestasis [Recovering/Resolving]
  - Eosinophilia [Recovered/Resolved]
  - Gamma-glutamyltransferase increased [Recovering/Resolving]
  - Pyrexia [Recovered/Resolved]
  - C-reactive protein increased [Recovered/Resolved]
  - Transaminases increased [Recovering/Resolving]
  - Drug-induced liver injury [Recovering/Resolving]
